FAERS Safety Report 6730166-X (Version None)
Quarter: 2010Q2

REPORT INFORMATION
  Report Type: 
  Country: None (occurrence: None)
  Receive Date: 20100513
  Receipt Date: 20100430
  Transmission Date: 20101027
  Serious: Yes (Death, Other)
  Sender: FDA-Public Use
  Company Number: 009667

PATIENT
  Age: 28 Year
  Sex: Male

DRUGS (7)
  1. BUSULFEX [Suspect]
     Dosage: 5 MG/KG, INTRAVENOUS
     Route: 042
  2. AMBISOME [Concomitant]
  3. VORICONAZOLE [Concomitant]
  4. POSACONAZOLE [Concomitant]
  5. 5 FLUOROCYTOSINE (5 FLUOROCYSTOSINE) [Concomitant]
  6. CASPOFUNGIN (CASPOFUNGIN) [Concomitant]
  7. PALIFERMIN (PALIFERMIN) [Concomitant]

REACTIONS (4)
  - MUCOSAL INFLAMMATION [None]
  - NEUTROPENIA [None]
  - PNEUMONIA FUNGAL [None]
  - THROMBOCYTOPENIA [None]
